FAERS Safety Report 4838270-8 (Version None)
Quarter: 2005Q4

REPORT INFORMATION
  Report Type: 
  Country: None (occurrence: None)
  Receive Date: 20051123
  Receipt Date: 20051110
  Transmission Date: 20060501
  Serious: Yes (Hospitalization)
  Sender: FDA-Public Use
  Company Number: 2005155757

PATIENT
  Age: 51 Year
  Sex: Female

DRUGS (4)
  1. ZELDOX (CAPSULES) (ZIPRASIDONE) [Suspect]
     Indication: SCHIZOPHRENIA, RESIDUAL TYPE
     Dosage: 120 MG, ORAL
     Route: 048
     Dates: start: 20040310, end: 20040415
  2. EDRONAX (REBOXETINE) [Suspect]
     Indication: ILL-DEFINED DISORDER
     Dosage: 6 MG, ORAL
     Route: 048
  3. ZYPREXA [Concomitant]
  4. LEVOTHYROXINE SODIUM [Concomitant]

REACTIONS (3)
  - ECHOCARDIOGRAM ABNORMAL [None]
  - ELECTROCARDIOGRAM QT CORRECTED INTERVAL PROLONGED [None]
  - VENTRICULAR HYPERTROPHY [None]
